FAERS Safety Report 7905725-9 (Version None)
Quarter: 2011Q4

REPORT INFORMATION
  Report Type: 
  Country: None (occurrence: None)
  Receive Date: 20111107
  Receipt Date: 20111025
  Transmission Date: 20120403
  Serious: Yes (Hospitalization, Other)
  Sender: FDA-Public Use
  Company Number: 2011MA015710

PATIENT
  Age: 30 Year
  Sex: Female

DRUGS (3)
  1. DILTIAZEM HYDROCHLORIDE [Suspect]
     Indication: INTENTIONAL OVERDOSE
     Dosage: 1449 NG/ML
  2. METOPROLOL TARTRATE [Suspect]
     Indication: INTENTIONAL OVERDOSE
     Dosage: 388 NG/ML
  3. AMIODARONE HCL [Suspect]
     Indication: INTENTIONAL OVERDOSE
     Dosage: 2.7 MG/L

REACTIONS (8)
  - OVERDOSE [None]
  - RENAL FAILURE [None]
  - ABDOMINAL PAIN [None]
  - HYPERTROPHIC CARDIOMYOPATHY [None]
  - CONFUSIONAL STATE [None]
  - HYPOTENSION [None]
  - HEART RATE DECREASED [None]
  - GENERAL PHYSICAL HEALTH DETERIORATION [None]
